FAERS Safety Report 4749429-2 (Version None)
Quarter: 2005Q3

REPORT INFORMATION
  Report Type: 
  Country: None (occurrence: None)
  Receive Date: 20050822
  Receipt Date: 20050810
  Transmission Date: 20060218
  Serious: Yes (Life-Threatening, Hospitalization)
  Sender: FDA-Public Use
  Company Number: FI-SOLVAY-00205002653

PATIENT
  Age: 57 Year
  Sex: Male

DRUGS (3)
  1. PERINDOPRIL [Suspect]
     Indication: HYPERTENSION
     Dosage: DAILY DOSE: 4 MILLIGRAM(S)
     Route: 048
     Dates: start: 19990618, end: 19991208
  2. AMLODIPINE [Suspect]
     Indication: ILL-DEFINED DISORDER
     Dosage: DAILY DOSE: 5 MILLIGRAM(S)
     Route: 048
     Dates: start: 19990222, end: 19990617
  3. PLACEBO [Suspect]
     Indication: ILL-DEFINED DISORDER
     Dosage: DAILY DOSE:  UNKNOWN
     Route: 048
     Dates: start: 19990222, end: 19991208

REACTIONS (2)
  - HYPEREOSINOPHILIC SYNDROME [None]
  - LIVER FUNCTION TEST ABNORMAL [None]
